FAERS Safety Report 4700749-7 (Version None)
Quarter: 2005Q2

REPORT INFORMATION
  Report Type: 
  Country: None (occurrence: None)
  Receive Date: 20050627
  Receipt Date: 20050608
  Transmission Date: 20051028
  Serious: Yes (Hospitalization)
  Sender: FDA-Public Use
  Company Number: 2005FR-00019

PATIENT
  Age: 56 Year
  Sex: Male

DRUGS (2)
  1. ASPIRIN [Suspect]
     Dosage: 75 MG, ONCE DAILY, ORAL
     Route: 048
     Dates: end: 20050515
  2. MEBEVERINE [Concomitant]

REACTIONS (3)
  - BARRETT'S OESOPHAGUS [None]
  - DYSPHAGIA [None]
  - HAEMATEMESIS [None]
